FAERS Safety Report 10245302 (Version 10)
Quarter: 2017Q2

REPORT INFORMATION
  Report Type: Report from Study
  Country: CA (occurrence: CA)
  Receive Date: 20140618
  Receipt Date: 20170426
  Transmission Date: 20170829
  Serious: Yes (Death, Hospitalization, Other)
  Sender: FDA-Public Use
  Company Number: CA-ROCHE-1419543

PATIENT
  Age: 81 Year
  Sex: Female

DRUGS (12)
  1. FLECAINIDE [Concomitant]
     Active Substance: FLECAINIDE
  2. DIGOXIN. [Concomitant]
     Active Substance: DIGOXIN
  3. VITAMIN B12 [Concomitant]
     Active Substance: CYANOCOBALAMIN
  4. METHYLPREDNISOLON [Concomitant]
     Active Substance: METHYLPREDNISOLONE
     Route: 042
     Dates: start: 20140603
  5. LEFLUNOMIDE. [Suspect]
     Active Substance: LEFLUNOMIDE
     Indication: RHEUMATOID ARTHRITIS
     Route: 048
     Dates: start: 2007
  6. SOLU-MEDROL [Suspect]
     Active Substance: METHYLPREDNISOLONE SODIUM SUCCINATE
     Indication: SKIN DISORDER
     Route: 042
  7. FOLIC ACID. [Concomitant]
     Active Substance: FOLIC ACID
  8. RITUXAN [Suspect]
     Active Substance: RITUXIMAB
     Indication: RHEUMATOID ARTHRITIS
     Dosage: PREVIOUS RITUXIMAB INFUSION: 03/JUL/2014
     Route: 042
     Dates: start: 20140603
  9. VITAMIN C [Concomitant]
     Active Substance: ASCORBIC ACID
  10. ARAVA [Concomitant]
     Active Substance: LEFLUNOMIDE
  11. DIPHENHYDRAMINE. [Concomitant]
     Active Substance: DIPHENHYDRAMINE
     Route: 048
     Dates: start: 20140603
  12. ACETAMINOPHEN. [Concomitant]
     Active Substance: ACETAMINOPHEN
     Route: 048
     Dates: start: 20140603

REACTIONS (8)
  - Arthritis bacterial [Unknown]
  - Death [Fatal]
  - Heart rate irregular [Unknown]
  - Chest discomfort [Recovered/Resolved with Sequelae]
  - Pneumonia [Unknown]
  - Localised infection [Not Recovered/Not Resolved]
  - Peripheral ischaemia [Unknown]
  - Thrombosis [Not Recovered/Not Resolved]

NARRATIVE: CASE EVENT DATE: 2014
